FAERS Safety Report 15058994 (Version 1)
Quarter: 2018Q2

REPORT INFORMATION
  Report Type: Spontaneous
  Country: IT (occurrence: IT)
  Receive Date: 20180625
  Receipt Date: 20180625
  Transmission Date: 20180711
  Serious: Yes (Hospitalization)
  Sender: FDA-Public Use
  Company Number: IT-BAUSCH-BL-2018-017462

PATIENT
  Age: 59 Year
  Sex: Male

DRUGS (6)
  1. CARDIOASPIRIN [Concomitant]
     Active Substance: ASPIRIN
     Indication: PRODUCT USED FOR UNKNOWN INDICATION
  2. JANUMET [Suspect]
     Active Substance: METFORMIN HYDROCHLORIDE\SITAGLIPTIN PHOSPHATE
     Indication: TYPE 2 DIABETES MELLITUS
     Dosage: 50 MG/1,000 MG FILM-COATED TABLETS.
     Route: 048
     Dates: start: 20170101, end: 20170315
  3. LUVION [Concomitant]
     Indication: PRODUCT USED FOR UNKNOWN INDICATION
  4. METFORMIN [Suspect]
     Active Substance: METFORMIN HYDROCHLORIDE
     Indication: TYPE 2 DIABETES MELLITUS
     Route: 048
     Dates: start: 20170101, end: 20170315
  5. ZYPREXA [Concomitant]
     Active Substance: OLANZAPINE
     Indication: PSYCHOTIC DISORDER
  6. TAVOR [Concomitant]
     Indication: PRODUCT USED FOR UNKNOWN INDICATION

REACTIONS (4)
  - Diabetic metabolic decompensation [Unknown]
  - Balance disorder [Unknown]
  - Bradyphrenia [Unknown]
  - Acetonaemia [Unknown]

NARRATIVE: CASE EVENT DATE: 20170315
